FAERS Safety Report 4598882-6 (Version None)
Quarter: 2005Q1

REPORT INFORMATION
  Report Type: 
  Country: None (occurrence: None)
  Receive Date: 20050304
  Receipt Date: 20050124
  Transmission Date: 20050727
  Serious: Yes (Other)
  Sender: FDA-Public Use
  Company Number: US-AMGEN-US118586

PATIENT
  Sex: Female

DRUGS (2)
  1. ENBREL [Suspect]
     Indication: PSORIASIS
  2. ANTIHYPERTENSIVE MEDICATION NOS [Concomitant]

REACTIONS (2)
  - CONDITION AGGRAVATED [None]
  - PSORIASIS [None]
